FAERS Safety Report 7652741-0 (Version None)
Quarter: 2011Q3

REPORT INFORMATION
  Report Type: 
  Country: None (occurrence: None)
  Receive Date: 20110803
  Receipt Date: 20110722
  Transmission Date: 20111222
  Serious: Yes (Hospitalization)
  Sender: FDA-Public Use
  Company Number: CA-JNJFOC-20110710720

PATIENT
  Sex: Male
  Weight: 124 kg

DRUGS (4)
  1. METHOTREXATE [Concomitant]
     Route: 065
  2. TRIIODOTHYRONINE [Concomitant]
     Route: 065
  3. VOLTAREN [Concomitant]
     Route: 065
  4. REMICADE [Suspect]
     Indication: PSORIATIC ARTHROPATHY
     Route: 042
     Dates: start: 20110421

REACTIONS (1)
  - HIP ARTHROPLASTY [None]
